FAERS Safety Report 17433381 (Version 1)
Quarter: 2020Q1

REPORT INFORMATION
  Report Type: Spontaneous
  Country: US (occurrence: US)
  Receive Date: 20200219
  Receipt Date: 20200219
  Transmission Date: 20200409
  Serious: No
  Sender: FDA-Public Use
  Company Number: US-LUNDBECK-DKLU3012417

PATIENT
  Age: 65 Year
  Sex: Female

DRUGS (5)
  1. SYNTHROID [Suspect]
     Active Substance: LEVOTHYROXINE SODIUM
     Indication: THYROID DISORDER
     Route: 065
  2. CALCITRON [Suspect]
     Active Substance: MINERALS\VITAMINS
     Indication: PARATHYROID DISORDER
  3. NORTHERA [Suspect]
     Active Substance: DROXIDOPA
     Indication: PRODUCT USED FOR UNKNOWN INDICATION
     Route: 048
     Dates: start: 20200212
  4. SYNTHROID [Suspect]
     Active Substance: LEVOTHYROXINE SODIUM
     Indication: PARATHYROID DISORDER
  5. CALCITRON [Suspect]
     Active Substance: MINERALS\VITAMINS
     Indication: THYROID DISORDER
     Route: 065

REACTIONS (7)
  - Headache [Unknown]
  - Dizziness [Unknown]
  - Pruritus [Unknown]
  - Presyncope [Unknown]
  - Weight increased [Unknown]
  - Gait disturbance [Unknown]
  - Nausea [Unknown]

NARRATIVE: CASE EVENT DATE: 20200212
